FAERS Safety Report 9493774 (Version 2)
Quarter: 2013Q3

REPORT INFORMATION
  Report Type: Report from Study
  Country: IT (occurrence: IT)
  Receive Date: 20130902
  Receipt Date: 20130906
  Transmission Date: 20140515
  Serious: Yes (Hospitalization)
  Sender: FDA-Public Use
  Company Number: IT-PFIZER INC-2013249066

PATIENT
  Age: 63 Year
  Sex: Female
  Weight: 61 kg

DRUGS (1)
  1. SUNITINIB MALATE [Suspect]
     Indication: RENAL CANCER
     Dosage: 50 MG, CYCLIC (ONCE DAILY 4 WEEKS ON, 2 WEEKS OFF)
     Route: 048
     Dates: start: 20121221, end: 20130711

REACTIONS (1)
  - Pancytopenia [Recovered/Resolved]
